FAERS Safety Report 5074504-5 (Version None)
Quarter: 2006Q3

REPORT INFORMATION
  Report Type: 
  Country: None (occurrence: None)
  Receive Date: 20060714
  Receipt Date: 20060505
  Transmission Date: 20061208
  Serious: No
  Sender: FDA-Public Use
  Company Number: 2006SP001956

PATIENT
  Age: 46 Year
  Sex: Male
  Weight: 82.5547 kg

DRUGS (7)
  1. LUNESTA [Suspect]
     Indication: INSOMNIA
     Dosage: 3 MG;HS;ORAL
     Route: 048
     Dates: start: 20060430, end: 20060504
  2. SINGULAIR [Concomitant]
  3. FOLIC ACID [Concomitant]
  4. PREVACID [Concomitant]
  5. CLONAZEPAM [Concomitant]
  6. ADVAIR DISKUS 100/50 [Concomitant]
  7. ASACOL [Concomitant]

REACTIONS (1)
  - INSOMNIA [None]
